FAERS Safety Report 8849612 (Version 2)
Quarter: 2012Q4

REPORT INFORMATION
  Report Type: 
  Country: JP (occurrence: JP)
  Receive Date: 20121019
  Receipt Date: 20121031
  Transmission Date: 20130627
  Serious: Yes (Hospitalization, Disabling)
  Sender: FDA-Public Use
  Company Number: JP-SANOFI-AVENTIS-2012SA075758

PATIENT
  Age: 67 Year
  Sex: Male
  Weight: 48 kg

DRUGS (4)
  1. PLAVIX [Suspect]
     Indication: HEART VALVE REPLACEMENT
     Route: 048
     Dates: start: 20120702, end: 201209
  2. WARFARIN [Concomitant]
     Indication: HEART VALVE REPLACEMENT
  3. ASPIRIN [Concomitant]
     Indication: HEART VALVE REPLACEMENT
     Dates: end: 20120702
  4. CORTICOSTEROID NOS [Concomitant]

REACTIONS (3)
  - Renal failure chronic [Not Recovered/Not Resolved]
  - Thrombotic thrombocytopenic purpura [Not Recovered/Not Resolved]
  - Haemolytic anaemia [Not Recovered/Not Resolved]
